FAERS Safety Report 6093442-2 (Version None)
Quarter: 2009Q1

REPORT INFORMATION
  Report Type: 
  Country: None (occurrence: None)
  Receive Date: 20090223
  Receipt Date: 20090223
  Transmission Date: 20090719
  Serious: Yes (Other)
  Sender: FDA-Public Use
  Company Number: None

PATIENT
  Age: 70 Year
  Sex: Female
  Weight: 95.2554 kg

DRUGS (1)
  1. VYTORIN [Suspect]
     Indication: BLOOD CHOLESTEROL INCREASED
     Dosage: 10/40 1 DAILY PO
     Route: 048
     Dates: start: 20080107, end: 20090103

REACTIONS (3)
  - JOINT STIFFNESS [None]
  - MUSCULAR WEAKNESS [None]
  - MYALGIA [None]
